FAERS Safety Report 21102705 (Version 1)
Quarter: 2022Q3

REPORT INFORMATION
  Report Type: Spontaneous
  Country: FR (occurrence: FR)
  Receive Date: 20220720
  Receipt Date: 20220720
  Transmission Date: 20221027
  Serious: Yes (Hospitalization)
  Sender: FDA-Public Use
  Company Number: None

PATIENT
  Age: 53 Year
  Sex: Female

DRUGS (1)
  1. ELIQUIS [Suspect]
     Active Substance: APIXABAN
     Indication: Pulmonary embolism
     Dosage: 5MG 2*/J
     Route: 048
     Dates: start: 20220207

REACTIONS (1)
  - Henoch-Schonlein purpura [Recovering/Resolving]

NARRATIVE: CASE EVENT DATE: 20220215
